FAERS Safety Report 7864075-X (Version None)
Quarter: 2011Q4

REPORT INFORMATION
  Report Type: 
  Country: None (occurrence: None)
  Receive Date: 20111028
  Receipt Date: 20111021
  Transmission Date: 20120403
  Serious: Yes (Hospitalization)
  Sender: FDA-Public Use
  Company Number: IT-JNJFOC-20111009584

PATIENT
  Sex: Male

DRUGS (1)
  1. LEVOFLOXACIN [Suspect]
     Indication: INFECTION
     Route: 048
     Dates: start: 20110905, end: 20110910

REACTIONS (6)
  - HEPATIC ENZYME INCREASED [None]
  - DYSPHONIA [None]
  - INSOMNIA [None]
  - GAIT DISTURBANCE [None]
  - IRRITABILITY [None]
  - PARAESTHESIA [None]
